FAERS Safety Report 7557064-6 (Version None)
Quarter: 2011Q2

REPORT INFORMATION
  Report Type: 
  Country: None (occurrence: None)
  Receive Date: 20110620
  Receipt Date: 20110607
  Transmission Date: 20111010
  Serious: Yes (Hospitalization, Other)
  Sender: FDA-Public Use
  Company Number: US-ROCHE-727240

PATIENT
  Sex: Female
  Weight: 70.3 kg

DRUGS (2)
  1. ACCUTANE [Suspect]
     Indication: ACNE
     Route: 065
     Dates: start: 20040801, end: 20060101
  2. BIRTH CONTROL PILLS [Concomitant]

REACTIONS (15)
  - RECTAL FISSURE [None]
  - BLOOD TRIGLYCERIDES INCREASED [None]
  - ALANINE AMINOTRANSFERASE INCREASED [None]
  - DEPRESSION [None]
  - GASTROINTESTINAL INJURY [None]
  - INFLAMMATORY BOWEL DISEASE [None]
  - ORAL HERPES [None]
  - TONSILLITIS [None]
  - ASPARTATE AMINOTRANSFERASE INCREASED [None]
  - RECTAL POLYP [None]
  - GOITRE [None]
  - CROHN'S DISEASE [None]
  - COLITIS ULCERATIVE [None]
  - HAEMORRHOIDS [None]
  - FATIGUE [None]
